FAERS Safety Report 21153794 (Version 1)
Quarter: 2022Q3

REPORT INFORMATION
  Report Type: Spontaneous
  Country: FR (occurrence: FR)
  Receive Date: 20220801
  Receipt Date: 20220801
  Transmission Date: 20221027
  Serious: Yes (Hospitalization, Other)
  Sender: FDA-Public Use
  Company Number: FR-AFSSAPS-PC20221988

PATIENT
  Age: 43 Year
  Sex: Female

DRUGS (5)
  1. MEROPENEM [Suspect]
     Active Substance: MEROPENEM
     Indication: Pneumonia
     Dosage: 8 GRAM
     Route: 042
     Dates: start: 20220502, end: 20220504
  2. MEROPENEM [Suspect]
     Active Substance: MEROPENEM
     Dosage: 8 GRAM
     Route: 042
     Dates: start: 20220422, end: 20220429
  3. MEROPENEM [Suspect]
     Active Substance: MEROPENEM
     Dosage: 8 GRAM
     Route: 042
     Dates: start: 20220529, end: 20220609
  4. MEROPENEM [Suspect]
     Active Substance: MEROPENEM
     Dosage: 8 GRAM
     Route: 042
     Dates: start: 20220508, end: 20220511
  5. CHLORPROMAZINE [Suspect]
     Active Substance: CHLORPROMAZINE
     Indication: Sedation
     Dosage: 150 MILLIGRAM
     Route: 042
     Dates: start: 20220528, end: 20220530

REACTIONS (1)
  - Eosinophilic pneumonia [Recovered/Resolved]

NARRATIVE: CASE EVENT DATE: 20220603
